FAERS Safety Report 9766720 (Version 1)
Quarter: 2013Q4

REPORT INFORMATION
  Report Type: Spontaneous
  Country: US (occurrence: US)
  Receive Date: 20131217
  Receipt Date: 20131217
  Transmission Date: 20140711
  Serious: No
  Sender: FDA-Public Use
  Company Number: US-BIOGENIDEC-2013BI118103

PATIENT
  Sex: Female

DRUGS (1)
  1. TECFIDERA [Suspect]
     Indication: RELAPSING-REMITTING MULTIPLE SCLEROSIS

REACTIONS (16)
  - Headache [Unknown]
  - Chest pain [Unknown]
  - Neck pain [Unknown]
  - Musculoskeletal pain [Unknown]
  - Sinus disorder [Unknown]
  - Asthma [Unknown]
  - Hypersensitivity [Unknown]
  - Infection susceptibility increased [Unknown]
  - Pain [Unknown]
  - Rhinorrhoea [Unknown]
  - Neuropathy peripheral [Unknown]
  - Back pain [Unknown]
  - Fibromyalgia [Unknown]
  - Flushing [Unknown]
  - Pruritus [Unknown]
  - Nausea [Unknown]
